FAERS Safety Report 23299980 (Version 4)
Quarter: 2024Q1

REPORT INFORMATION
  Report Type: Report from Study
  Country: US (occurrence: US)
  Receive Date: 20231215
  Receipt Date: 20240315
  Transmission Date: 20240410
  Serious: No
  Sender: FDA-Public Use
  Company Number: US-ACADIA PHARMACEUTICALS INC.-ACA-2023-TRF-005378

PATIENT
  Age: 29 Year
  Sex: Female

DRUGS (1)
  1. DAYBUE [Suspect]
     Active Substance: TROFINETIDE
     Indication: Rett syndrome
     Dosage: 50 MILLILITER, BID
     Dates: start: 20231110

REACTIONS (13)
  - Faeces soft [Not Recovered/Not Resolved]
  - Ill-defined disorder [Not Recovered/Not Resolved]
  - Incorrect route of product administration [Not Recovered/Not Resolved]
  - Abdominal distension [Not Recovered/Not Resolved]
  - Infrequent bowel movements [Not Recovered/Not Resolved]
  - Aggression [Not Recovered/Not Resolved]
  - Crying [Not Recovered/Not Resolved]
  - Feeling abnormal [Not Recovered/Not Resolved]
  - Screaming [Not Recovered/Not Resolved]
  - Weight decreased [Not Recovered/Not Resolved]
  - Diarrhoea [Not Recovered/Not Resolved]
  - Diarrhoea [Recovered/Resolved]
  - Diarrhoea [Unknown]

NARRATIVE: CASE EVENT DATE: 20231114
